FAERS Safety Report 9735121 (Version 1)
Quarter: 2013Q4

REPORT INFORMATION
  Report Type: Spontaneous
  Country: US (occurrence: US)
  Receive Date: 20131206
  Receipt Date: 20131206
  Transmission Date: 20140711
  Serious: Yes (Hospitalization)
  Sender: FDA-Public Use
  Company Number: US-BAYER-2013-147484

PATIENT
  Age: 46 Year
  Sex: Female
  Weight: 76.2 kg

DRUGS (17)
  1. ALLEGRA [Concomitant]
  2. YAZ [Suspect]
     Indication: MENSTRUAL CYCLE MANAGEMENT
  3. YASMIN [Suspect]
     Indication: MENSTRUAL CYCLE MANAGEMENT
  4. OCELLA [Suspect]
  5. TORADOL [Concomitant]
     Dosage: 30 MG, UNK
     Route: 042
     Dates: start: 20100121
  6. ZOFRAN [Concomitant]
     Dosage: 4 MG, UNK
     Route: 042
     Dates: start: 20100121
  7. DECADRON [Concomitant]
     Dosage: 4 MG, UNK
     Route: 042
     Dates: start: 20100121
  8. ROPIVACAINE [Concomitant]
     Indication: NERVE BLOCK
     Dosage: UNK
     Dates: start: 20100121
  9. FENTANYL [Concomitant]
     Dosage: 50 MCG
     Route: 042
     Dates: start: 20100121
  10. MIDAZOLAM [Concomitant]
     Dosage: 5 MG, UNK
     Route: 042
     Dates: start: 20100121
  11. DILAUDID [Concomitant]
     Dosage: UNK
     Route: 042
     Dates: start: 20100121
  12. ANCEF [Concomitant]
     Dosage: 1 G, UNK
     Route: 042
     Dates: start: 20100121
  13. PHENTERMINE [Concomitant]
     Dosage: 37.5 MG, UNK
  14. IBUPROFEN [Concomitant]
     Dosage: 800 MG, UNK
  15. ACETAMINOPHEN W/PROPOXYPHENE [Concomitant]
     Dosage: 100-650 MG
  16. PROMETHAZINE W/CODEINE [Concomitant]
     Dosage: 6.25-10 MG
  17. FLONASE [Concomitant]

REACTIONS (2)
  - Pulmonary embolism [Recovered/Resolved]
  - Deep vein thrombosis [None]
